FAERS Safety Report 6044766-6 (Version None)
Quarter: 2009Q1

REPORT INFORMATION
  Report Type: 
  Country: None (occurrence: None)
  Receive Date: 20090120
  Receipt Date: 20090113
  Transmission Date: 20090719
  Serious: Yes (Hospitalization, Other)
  Sender: FDA-Public Use
  Company Number: US-B.I. PHARMACEUTICALS,INC./RIDGEFIELD-2009-DE-00280GD

PATIENT
  Age: 10 Year
  Sex: Female

DRUGS (2)
  1. CLONIDINE [Suspect]
  2. PSYCHIATRIC MEDICATION [Suspect]
     Indication: SCHIZOPHRENIA

REACTIONS (4)
  - CARDIOMYOPATHY [None]
  - HYPERTENSION [None]
  - NODAL ARRHYTHMIA [None]
  - PALPITATIONS [None]
